FAERS Safety Report 24257128 (Version 1)
Quarter: 2024Q3

REPORT INFORMATION
  Report Type: Spontaneous
  Country: JP (occurrence: JP)
  Receive Date: 20240828
  Receipt Date: 20240828
  Transmission Date: 20241016
  Serious: Yes (Hospitalization)
  Sender: EMD SERONO INC
  Company Number: JP-Merck Healthcare KGaA-2024045561

PATIENT
  Age: 62 Year
  Sex: Male

DRUGS (8)
  1. METGLUCO [Suspect]
     Active Substance: METFORMIN HYDROCHLORIDE
     Indication: Diabetes mellitus
     Route: 048
  2. ALLOPURINOL [Suspect]
     Active Substance: ALLOPURINOL
     Indication: Product used for unknown indication
     Route: 048
  3. ALLOPURINOL [Suspect]
     Active Substance: ALLOPURINOL
     Dosage: UNKNOWN
     Route: 048
  4. ALOGLIPTIN BENZOATE\PIOGLITAZONE HYDROCHLORIDE [Concomitant]
     Active Substance: ALOGLIPTIN BENZOATE\PIOGLITAZONE HYDROCHLORIDE
     Indication: Product used for unknown indication
  5. CLOPIDOGREL BISULFATE [Concomitant]
     Active Substance: CLOPIDOGREL BISULFATE
     Indication: Product used for unknown indication
     Dosage: AFTER BREAKFAST
  6. AZELNIDIPINE\OLMESARTAN MEDOXOMIL [Concomitant]
     Active Substance: AZELNIDIPINE\OLMESARTAN MEDOXOMIL
     Indication: Product used for unknown indication
     Dosage: OLMESARTAN MEDOXOMIL OD TABLET (20 MG) 1 TABLET ONCE DAILY (AFTER BREAKFAST)
  7. DAPAGLIFLOZIN [Concomitant]
     Active Substance: DAPAGLIFLOZIN
     Indication: Product used for unknown indication
  8. DOXAZOSIN MESYLATE [Concomitant]
     Active Substance: DOXAZOSIN MESYLATE
     Indication: Product used for unknown indication

REACTIONS (4)
  - Hypokalaemia [Unknown]
  - Diabetes mellitus inadequate control [Unknown]
  - Acute kidney injury [Unknown]
  - Lactic acidosis [Recovered/Resolved]

NARRATIVE: CASE EVENT DATE: 20240611
